FAERS Safety Report 7281680-2 (Version None)
Quarter: 2011Q1

REPORT INFORMATION
  Report Type: 
  Country: None (occurrence: None)
  Receive Date: 20110126
  Receipt Date: 20101231
  Transmission Date: 20110831
  Serious: Yes (Death)
  Sender: FDA-Public Use
  Company Number: AUR-APL-2011-00047

PATIENT
  Age: 43 Year
  Sex: Male

DRUGS (5)
  1. GLIPIZIDE [Suspect]
  2. CAFFEINE/ERGOTAMINE [Suspect]
  3. TRIAMTERENE AND HYDROCHLOROTHIAZIDE [Suspect]
  4. METFORMIN HCL [Suspect]
  5. AMLODIPINE [Suspect]

REACTIONS (2)
  - INTENTIONAL DRUG MISUSE [None]
  - COMPLETED SUICIDE [None]
